FAERS Safety Report 23152185 (Version 3)
Quarter: 2024Q1

REPORT INFORMATION
  Report Type: Report from Study
  Country: US (occurrence: US)
  Receive Date: 20231107
  Receipt Date: 20240207
  Transmission Date: 20240410
  Serious: Yes (Hospitalization, Other)
  Sender: FDA-Public Use
  Company Number: US-ABBVIE-5478698

PATIENT
  Sex: Male

DRUGS (1)
  1. VENCLEXTA [Suspect]
     Active Substance: VENETOCLAX
     Indication: Acute myeloid leukaemia
     Route: 048
     Dates: start: 202310

REACTIONS (9)
  - Lip infection [Unknown]
  - Loss of personal independence in daily activities [Unknown]
  - Platelet transfusion [Unknown]
  - Asthenia [Unknown]
  - Drug ineffective [Unknown]
  - Transfusion [Unknown]
  - Liver function test abnormal [Unknown]
  - Red blood cell transfusion [Unknown]
  - Platelet transfusion [Unknown]

NARRATIVE: CASE EVENT DATE: 20230101
